FAERS Safety Report 26002722 (Version 2)
Quarter: 2025Q4

REPORT INFORMATION
  Report Type: Report from Study
  Country: TR (occurrence: TR)
  Receive Date: 20251106
  Receipt Date: 20251113
  Transmission Date: 20260118
  Serious: Yes (Death, Hospitalization)
  Sender: ABBVIE
  Company Number: TR-ABBVIE-6505489

PATIENT
  Age: 61 Year
  Sex: Male
  Weight: 68 kg

DRUGS (2)
  1. CARBIDOPA\LEVODOPA [Suspect]
     Active Substance: CARBIDOPA\LEVODOPA
     Indication: Parkinson^s disease
     Dosage: MORNING DOSE (ML): 5.00 CONTINUOUS DOSE (ML): 2.40 EXTRA DOSE (ML): 1.50
     Route: 050
     Dates: start: 20250528, end: 20251028
  2. CARBIDOPA\LEVODOPA [Suspect]
     Active Substance: CARBIDOPA\LEVODOPA
     Dosage: MORNING DOSE (ML): 5.00 CONTINUOUS DOSE (ML): 2.00 EXTRA DOSE (ML): 1.50
     Route: 050
     Dates: start: 20251028

REACTIONS (8)
  - Death [Fatal]
  - Vomiting [Unknown]
  - Nausea [Unknown]
  - Hypoaesthesia [Unknown]
  - Decreased appetite [Unknown]
  - Muscle spasms [Unknown]
  - Hallucination [Not Recovered/Not Resolved]
  - General physical health deterioration [Unknown]

NARRATIVE: CASE EVENT DATE: 20250101
